FAERS Safety Report 5086970-X (Version None)
Quarter: 2006Q3

REPORT INFORMATION
  Report Type: 
  Country: None (occurrence: None)
  Receive Date: 20060821
  Receipt Date: 20060817
  Transmission Date: 20061208
  Serious: Yes (Other)
  Sender: FDA-Public Use
  Company Number: 2006-08-1037

PATIENT
  Age: 67 Year
  Sex: Female

DRUGS (3)
  1. AERIUS (DESLORATADINE) TABLETS [Suspect]
     Indication: URTICARIA
     Dosage: 5 MG PO ORAL
     Route: 048
     Dates: start: 20060712, end: 20060808
  2. MEDROL [Concomitant]
  3. EUTHYROX [Concomitant]

REACTIONS (2)
  - ARRHYTHMIA [None]
  - ATRIAL FLUTTER [None]
